FAERS Safety Report 26195439 (Version 1)
Quarter: 2025Q4

REPORT INFORMATION
  Report Type: Spontaneous
  Country: US (occurrence: US)
  Receive Date: 20251224
  Receipt Date: 20251224
  Transmission Date: 20260118
  Serious: Yes (Hospitalization, Other)
  Sender: MERCK SHARP & DOHME LLC
  Company Number: US-009507513-2361403

PATIENT
  Age: 71 Year
  Sex: Female

DRUGS (8)
  1. KEYTRUDA [Suspect]
     Active Substance: PEMBROLIZUMAB
     Indication: Non-small cell lung cancer
     Dosage: EVERY 3 WEEKS
     Route: 050
     Dates: start: 202510
  2. CARBOPLATIN [Concomitant]
     Active Substance: CARBOPLATIN
  3. ABRAXANE [Concomitant]
     Active Substance: PACLITAXEL
  4. PREDNISONE [Concomitant]
     Active Substance: PREDNISONE
  5. ZOFRAN [Concomitant]
     Active Substance: ONDANSETRON HYDROCHLORIDE
  6. CLONAZEPAM [Concomitant]
     Active Substance: CLONAZEPAM
  7. ROSUVASTATIN [Concomitant]
     Active Substance: ROSUVASTATIN
  8. sodium bi carb [Concomitant]

REACTIONS (3)
  - Renal impairment [Unknown]
  - Malignant neoplasm progression [Unknown]
  - Adrenal disorder [Unknown]

NARRATIVE: CASE EVENT DATE: 20250101
